FAERS Safety Report 24607334 (Version 1)
Quarter: 2024Q4

REPORT INFORMATION
  Report Type: Spontaneous
  Country: US (occurrence: US)
  Receive Date: 20241112
  Receipt Date: 20241112
  Transmission Date: 20250115
  Serious: Yes (Other)
  Sender: SAMSUNG BIOEPIS
  Company Number: US-SAMSUNG BIOEPIS-SB-2024-33023

PATIENT
  Age: 64 Year
  Sex: Male

DRUGS (2)
  1. ADALIMUMAB [Suspect]
     Active Substance: ADALIMUMAB
     Indication: Retinal vasculitis
  2. CORTICOTROPIN [Suspect]
     Active Substance: CORTICOTROPIN
     Indication: Retinal vasculitis
     Dosage: RCI STARTED WITH A DOSE OF 80U THREE TIMES/WEEK
     Route: 058

REACTIONS (6)
  - Diabetes mellitus inadequate control [Unknown]
  - Urinary tract infection [Unknown]
  - Hypertension [Unknown]
  - Oedema peripheral [Unknown]
  - Nephropathy [Unknown]
  - Off label use [Unknown]
